FAERS Safety Report 20861370 (Version 1)
Quarter: 2022Q2

REPORT INFORMATION
  Report Type: Spontaneous
  Country: US (occurrence: US)
  Receive Date: 20220523
  Receipt Date: 20220523
  Transmission Date: 20220721
  Serious: Yes (Other)
  Sender: FDA-Public Use
  Company Number: US-MLMSERVICE-20220511-3550091-1

PATIENT
  Age: 63 Year
  Sex: Female

DRUGS (2)
  1. DEXAMETHASONE [Suspect]
     Active Substance: DEXAMETHASONE
     Indication: Trigger finger
     Dosage: 1 CM3 OF DEXAMETHASONE
     Route: 014
  2. LIDOCAINE [Suspect]
     Active Substance: LIDOCAINE
     Indication: Trigger finger
     Dosage: 2 CM3OF 1% LIDOCAINE
     Route: 014

REACTIONS (1)
  - Tendon rupture [Recovered/Resolved]
